FAERS Safety Report 18574593 (Version 1)
Quarter: 2020Q4

REPORT INFORMATION
  Report Type: Spontaneous
  Country: US (occurrence: US)
  Receive Date: 20201202
  Receipt Date: 20201202
  Transmission Date: 20210114
  Serious: No
  Sender: FDA-Public Use
  Company Number: None

PATIENT
  Age: 59 Year
  Sex: Female

DRUGS (14)
  1. PROMETHAZINE 25MG [Concomitant]
     Dates: start: 20191021
  2. HYDRALAZLINE 50MG [Concomitant]
     Dates: start: 20190610
  3. MYCOPHENOLIC DR TABLETS 180MG ACCORD [Suspect]
     Active Substance: MYCOPHENOLIC ACID
     Indication: RENAL TRANSPLANT
     Route: 048
     Dates: start: 20191129
  4. SANDIMMUNE [Suspect]
     Active Substance: CYCLOSPORINE
     Indication: RENAL TRANSPLANT
     Route: 048
     Dates: start: 20180809
  5. BUT/ACE/CAFF [Concomitant]
     Dates: start: 20190817
  6. AMITRIPTYLINE 100MG [Concomitant]
     Dates: start: 20191101
  7. CLONIDINE 0.1MG/24H WEEKLY PATCH [Concomitant]
     Dates: start: 20200401
  8. FERROUS SULFATE 325MG [Concomitant]
     Active Substance: FERROUS SULFATE
     Dates: start: 20200612
  9. METOPROLOL TART 50MG [Concomitant]
     Dates: start: 20190208
  10. VICTOZA 18MG/3ML INJECTION [Concomitant]
     Dates: start: 20190209
  11. ACYCLOVIR 400MG [Concomitant]
     Active Substance: ACYCLOVIR
     Dates: start: 20201021
  12. ATORVASTATIN 40MG [Concomitant]
     Active Substance: ATORVASTATIN
     Dates: start: 20200813, end: 20200913
  13. GABAPENTIN 300MG [Concomitant]
     Active Substance: GABAPENTIN
     Dates: start: 20190415
  14. LEVEMIR FLEXTOUCH PEN [Concomitant]
     Dates: start: 20200922

REACTIONS (1)
  - Hypertension [None]

NARRATIVE: CASE EVENT DATE: 20201117
